FAERS Safety Report 5468923-2 (Version None)
Quarter: 2007Q3

REPORT INFORMATION
  Report Type: 
  Country: None (occurrence: None)
  Receive Date: 20070926
  Receipt Date: 20070921
  Transmission Date: 20080115
  Serious: Yes (Hospitalization)
  Sender: FDA-Public Use
  Company Number: US-MERCK-0705USA03634

PATIENT
  Age: 76 Year
  Sex: Female

DRUGS (2)
  1. FOSAMAX [Suspect]
     Indication: PROPHYLAXIS
     Route: 048
     Dates: start: 19980101, end: 20060101
  2. FOSAMAX [Suspect]
     Route: 048
     Dates: start: 19990701, end: 20000201

REACTIONS (6)
  - ANXIETY [None]
  - DEPRESSION [None]
  - INTERVERTEBRAL DISC PROTRUSION [None]
  - JAW FRACTURE [None]
  - OSTEOMYELITIS [None]
  - OSTEONECROSIS [None]
